FAERS Safety Report 7001045-8 (Version None)
Quarter: 2010Q3

REPORT INFORMATION
  Report Type: 
  Country: None (occurrence: None)
  Receive Date: 20100920
  Receipt Date: 20071116
  Transmission Date: 20110219
  Serious: Yes (Other)
  Sender: FDA-Public Use
  Company Number: US-ASTRAZENECA-2007UW03781

PATIENT
  Age: 9144 Day
  Sex: Male

DRUGS (9)
  1. SEROQUEL [Suspect]
     Indication: BIPOLAR DISORDER
     Route: 048
     Dates: start: 20030620, end: 20030820
  2. SEROQUEL [Suspect]
     Route: 048
     Dates: start: 20030620
  3. ACCOLATE [Concomitant]
     Dates: start: 20030207
  4. ESKALITH CR [Concomitant]
     Dosage: DOSE- ONE AND A HALF TABLETS AT 8:00AM AND TWO TABLETS AT 8:00 PM
     Dates: start: 20021208
  5. DEPAKOTE [Concomitant]
     Dosage: STRENGTH 250MG. DOSE 750MG IN MORNING AND 750MG IN NIGHT
     Dates: start: 20030131
  6. ZYRTEC-D 12 HOUR [Concomitant]
     Dates: start: 20030316
  7. EFFEXOR XR [Concomitant]
     Dosage: STRENGTH 75MG, 150MG
     Dates: start: 20030328
  8. ABILIFY [Concomitant]
     Dates: start: 20030802
  9. BIAXIN XL [Concomitant]
     Dates: start: 20031021

REACTIONS (1)
  - PANCREATITIS ACUTE [None]
